FAERS Safety Report 4415024-8 (Version None)
Quarter: 2004Q3

REPORT INFORMATION
  Report Type: 
  Country: None (occurrence: None)
  Receive Date: 20040803
  Receipt Date: 20040803
  Transmission Date: 20050211
  Serious: Yes (Hospitalization)
  Sender: FDA-Public Use
  Company Number: None

PATIENT
  Sex: Male

DRUGS (2)
  1. IRESSA [Suspect]
     Indication: NON-SMALL CELL LUNG CANCER
     Dosage: 250 MG /TAB DAILY PO
     Route: 048
     Dates: start: 20040121
  2. TAXOTERE [Suspect]
     Indication: NON-SMALL CELL LUNG CANCER
     Dosage: 30 MG WKLY IV
     Route: 042
     Dates: start: 20040121

REACTIONS (4)
  - HYPERHIDROSIS [None]
  - HYPOTENSION [None]
  - NEUTROPENIA [None]
  - PALLOR [None]
